FAERS Safety Report 20356792 (Version 1)
Quarter: 2022Q1

REPORT INFORMATION
  Report Type: Spontaneous
  Country: US (occurrence: US)
  Receive Date: 20220120
  Receipt Date: 20220120
  Transmission Date: 20220423
  Serious: No
  Sender: FDA-Public Use
  Company Number: US-PFIZER INC-2021601431

PATIENT
  Age: 44 Year
  Sex: Female

DRUGS (1)
  1. LYRICA [Suspect]
     Active Substance: PREGABALIN
     Dosage: 50 MG, 2X/DAY (MAY TAKE AN EXTRA 50 MG DOSE ONCE DAILY AS NEEDED FOR FLARES)

REACTIONS (1)
  - Attention deficit hyperactivity disorder [Unknown]
